FAERS Safety Report 14500695 (Version 1)
Quarter: 2018Q1

REPORT INFORMATION
  Report Type: Spontaneous
  Country: US (occurrence: US)
  Receive Date: 20180207
  Receipt Date: 20180207
  Transmission Date: 20180509
  Serious: No
  Sender: FDA-Public Use
  Company Number: US-AMGEN-USASP2017154414

PATIENT
  Age: 63 Year
  Sex: Female

DRUGS (1)
  1. NEULASTA [Suspect]
     Active Substance: PEGFILGRASTIM
     Indication: PRODUCT USED FOR UNKNOWN INDICATION
     Dosage: UNK UNK, AFTER CHEMO
     Route: 065
     Dates: start: 20170919

REACTIONS (10)
  - White blood cell count decreased [Unknown]
  - Myalgia [Unknown]
  - Oral infection [Unknown]
  - Alopecia [Not Recovered/Not Resolved]
  - Adverse drug reaction [Unknown]
  - Wrong technique in product usage process [Unknown]
  - Constipation [Unknown]
  - Mouth ulceration [Unknown]
  - Bone pain [Unknown]
  - Pain in extremity [Unknown]

NARRATIVE: CASE EVENT DATE: 2017
